FAERS Safety Report 17355965 (Version 3)
Quarter: 2020Q1

REPORT INFORMATION
  Report Type: Spontaneous
  Country: JP (occurrence: JP)
  Receive Date: 20200131
  Receipt Date: 20200312
  Transmission Date: 20200409
  Serious: Yes (Hospitalization)
  Sender: FDA-Public Use
  Company Number: JP-PFIZER INC-2020041975

PATIENT
  Age: 26 Year
  Sex: Female
  Weight: 47.7 kg

DRUGS (7)
  1. MEILAX [Suspect]
     Active Substance: ETHYL LOFLAZEPATE
     Dosage: UNK
     Route: 048
     Dates: start: 20200118, end: 20200120
  2. EFFEXOR [Suspect]
     Active Substance: VENLAFAXINE HYDROCHLORIDE
     Indication: DEPRESSION
     Dosage: 37.5 MG, 1X/DAY
     Route: 048
     Dates: start: 20190408, end: 20190818
  3. EFFEXOR [Suspect]
     Active Substance: VENLAFAXINE HYDROCHLORIDE
     Dosage: 75 MG, 1X/DAY
     Route: 048
     Dates: start: 20190819
  4. EFFEXOR [Suspect]
     Active Substance: VENLAFAXINE HYDROCHLORIDE
     Dosage: UNK
     Route: 048
     Dates: start: 20200118, end: 20200120
  5. LIMAS [Suspect]
     Active Substance: LITHIUM CARBONATE
     Indication: MANIA
     Dosage: 400 MG, 1X/DAY
     Route: 048
     Dates: start: 20150815
  6. LIMAS [Suspect]
     Active Substance: LITHIUM CARBONATE
     Dosage: UNK
     Route: 048
     Dates: start: 20200118, end: 20200120
  7. MEILAX [Suspect]
     Active Substance: ETHYL LOFLAZEPATE
     Indication: ANXIETY
     Dosage: 1 MG, 1X/DAY
     Route: 048
     Dates: start: 20150815

REACTIONS (3)
  - Overdose [Recovered/Resolved]
  - Sedation complication [Recovered/Resolved]
  - Fatigue [Recovered/Resolved]

NARRATIVE: CASE EVENT DATE: 202001
